FAERS Safety Report 17988968 (Version 2)
Quarter: 2020Q3

REPORT INFORMATION
  Report Type: Spontaneous
  Country: US (occurrence: US)
  Receive Date: 20200707
  Receipt Date: 20200817
  Transmission Date: 20201103
  Serious: No
  Sender: FDA-Public Use
  Company Number: US-SA-2020SA170557

PATIENT

DRUGS (1)
  1. LANTUS SOLOSTAR [Suspect]
     Active Substance: INSULIN GLARGINE
     Indication: TYPE 2 DIABETES MELLITUS
     Dosage: 40 AM ? 35 PM IU, BID
     Route: 065

REACTIONS (3)
  - Blood glucose increased [Unknown]
  - Memory impairment [Unknown]
  - Inappropriate schedule of product administration [Unknown]
